FAERS Safety Report 18368047 (Version 4)
Quarter: 2020Q4

REPORT INFORMATION
  Report Type: Report from Study
  Country: BE (occurrence: BE)
  Receive Date: 20201009
  Receipt Date: 20201202
  Transmission Date: 20210114
  Serious: Yes (Hospitalization)
  Sender: FDA-Public Use
  Company Number: BE-MORPHOSYS US-2020-MOR000580-BE

PATIENT

DRUGS (21)
  1. TAFASITAMAB [Suspect]
     Active Substance: TAFASITAMAB
     Dosage: 12 MILLIGRAM/KILOGRAM, SINGLE
     Route: 042
     Dates: start: 20200720, end: 20200720
  2. CLEXANE [Concomitant]
     Active Substance: ENOXAPARIN SODIUM
     Indication: THROMBOSIS
     Dosage: 4000 INTERNATIONAL UNIT, QD
     Route: 058
     Dates: start: 20200612, end: 20200614
  3. MACROGOL [Concomitant]
     Active Substance: POLYETHYLENE GLYCOLS
     Indication: CONSTIPATION
     Dosage: 1 INTERNATIONAL UNIT, PRN
     Route: 048
     Dates: start: 20200707
  4. R-CHOP [Suspect]
     Active Substance: CYCLOPHOSPHAMIDE\DOXORUBICIN\PREDNISONE\RITUXIMAB\VINCRISTINE
     Indication: DIFFUSE LARGE B-CELL LYMPHOMA
     Dosage: UNK
     Route: 048
     Dates: start: 20200713
  5. ALLOPURINOL. [Concomitant]
     Active Substance: ALLOPURINOL
     Indication: BLOOD URIC ACID INCREASED
     Dosage: 300 MILLIGRAM, QD
     Route: 048
     Dates: start: 1995, end: 20200710
  6. PANTOPRAZOL [Concomitant]
     Active Substance: PANTOPRAZOLE SODIUM
     Indication: ABDOMINAL PAIN UPPER
     Dosage: 40 MILLIGRAM, QD
     Route: 048
     Dates: start: 20200612, end: 20200906
  7. RASBURICASE [Concomitant]
     Active Substance: RASBURICASE
     Indication: TUMOUR LYSIS SYNDROME
     Dosage: 18 MILLIGRAM, QOD
     Route: 042
     Dates: start: 20200709, end: 20200711
  8. RASBURICASE [Concomitant]
     Active Substance: RASBURICASE
     Indication: PROPHYLAXIS
     Dosage: 1 MILLIGRAM, PRN
     Route: 042
     Dates: start: 20200712, end: 20200717
  9. FYTOMENADION [Concomitant]
     Active Substance: PHYTONADIONE
     Indication: INTERNATIONAL NORMALISED RATIO INCREASED
     Dosage: 10 MILLIGRAM, PRN
     Route: 048
     Dates: start: 20200708, end: 20200716
  10. ALIZAPRIDE [Concomitant]
     Active Substance: ALIZAPRIDE
     Indication: NAUSEA
     Dosage: 50 MILLIGRAM, PRN
     Route: 048
     Dates: start: 20200713
  11. CLEXANE [Concomitant]
     Active Substance: ENOXAPARIN SODIUM
     Dosage: 4000 INTERNATIONAL UNIT, QD
     Route: 058
     Dates: start: 20200710, end: 20200710
  12. AMLODIPINE [Concomitant]
     Active Substance: AMLODIPINE BESYLATE
     Indication: HYPERTENSION
     Dosage: 5 MILLIGRAM, QD
     Route: 048
     Dates: start: 20200609, end: 20200703
  13. PANTOPRAZOL [Concomitant]
     Active Substance: PANTOPRAZOLE SODIUM
     Indication: DUODENITIS
  14. AMOXICILLINE [Concomitant]
     Active Substance: AMOXICILLIN
     Indication: PYREXIA
     Dosage: 1 GRAM, QID
     Route: 042
     Dates: start: 20200612, end: 20200615
  15. PERINDOPRIL INDAPAMIDE [Concomitant]
     Active Substance: INDAPAMIDE\PERINDOPRIL
     Indication: HYPERTENSION
     Dosage: 1 DOSAGE FORM, QD
     Route: 048
     Dates: start: 20200609, end: 20200703
  16. PALONOSETRON. [Concomitant]
     Active Substance: PALONOSETRON HYDROCHLORIDE
     Indication: NAUSEA
     Dosage: 5 MILLILITER, SINGLE
     Route: 042
     Dates: start: 20200713, end: 20200713
  17. SIMVASTATINE [Concomitant]
     Active Substance: SIMVASTATIN
     Indication: BLOOD CHOLESTEROL INCREASED
     Dosage: 20 MILLIGRAM, QD
     Route: 048
     Dates: start: 1995, end: 20200917
  18. KALIUM GLUCONATE [Concomitant]
     Indication: HYPOKALAEMIA
     Dosage: 20 MILLIEQUIVALENT, TID
     Route: 048
     Dates: start: 20200707, end: 20200710
  19. TRAMADOL. [Concomitant]
     Active Substance: TRAMADOL
     Indication: ABDOMINAL PAIN
     Dosage: 50 MILLIGRAM, PRN
     Route: 048
     Dates: start: 20200707, end: 20200717
  20. TAFASITAMAB [Suspect]
     Active Substance: TAFASITAMAB
     Indication: DIFFUSE LARGE B-CELL LYMPHOMA
     Dosage: 12 MILLIGRAM/KILOGRAM, SINGLE
     Route: 042
     Dates: start: 20200713, end: 20200713
  21. GADOBUTROL. [Concomitant]
     Active Substance: GADOBUTROL
     Indication: PREMEDICATION
     Dosage: 7.5 MILLILITER, SINGLE
     Route: 042
     Dates: start: 20200709, end: 20200709

REACTIONS (1)
  - Tumour lysis syndrome [Recovered/Resolved]

NARRATIVE: CASE EVENT DATE: 20200714
